FAERS Safety Report 6061796-9 (Version None)
Quarter: 2009Q1

REPORT INFORMATION
  Report Type: 
  Country: None (occurrence: None)
  Receive Date: 20090202
  Receipt Date: 20090120
  Transmission Date: 20090719
  Serious: Yes (Other)
  Sender: FDA-Public Use
  Company Number: JP-ROCHE-606930

PATIENT
  Sex: Male
  Weight: 24 kg

DRUGS (4)
  1. TAMIFLU [Suspect]
     Indication: INFLUENZA
     Dosage: DRUG REPORTED AS TAMIFLU DRY SYRUP 3%
     Route: 048
     Dates: start: 20081221, end: 20081221
  2. ASVERIN [Concomitant]
     Route: 048
     Dates: start: 20081221, end: 20081221
  3. MUCODYNE [Concomitant]
     Dosage: FORM: FINE GRANULE
     Route: 048
     Dates: start: 20081221, end: 20081221
  4. BIOFERMIN [Concomitant]
     Dosage: FORM: FINE GRANULE; DRUG REPORTED AS BIOFERMIN (LACTOMIN)
     Route: 048
     Dates: start: 20081221, end: 20081221

REACTIONS (1)
  - ABNORMAL BEHAVIOUR [None]
